FAERS Safety Report 5469531-X (Version None)
Quarter: 2007Q3

REPORT INFORMATION
  Report Type: 
  Country: None (occurrence: None)
  Receive Date: 20070927
  Receipt Date: 20070921
  Transmission Date: 20080115
  Serious: Yes (Hospitalization)
  Sender: FDA-Public Use
  Company Number: B0487312A

PATIENT
  Age: 2 Year

DRUGS (1)
  1. LAMOTRIGINE [Suspect]
     Route: 065
     Dates: start: 19980101

REACTIONS (4)
  - RENAL FAILURE ACUTE [None]
  - RESPIRATORY DISTRESS [None]
  - SEPSIS [None]
  - STEVENS-JOHNSON SYNDROME [None]
